FAERS Safety Report 10397243 (Version 1)
Quarter: 2014Q3

REPORT INFORMATION
  Report Type: Spontaneous
  Country: DE (occurrence: DE)
  Receive Date: 20140820
  Receipt Date: 20140820
  Transmission Date: 20150326
  Serious: Yes (Congenital Anomaly)
  Sender: FDA-Public Use
  Company Number: DE-TEVA-502033GER

PATIENT
  Age: 1 Day
  Sex: Male

DRUGS (4)
  1. VOMEX A [Concomitant]
     Active Substance: DIMENHYDRINATE
     Route: 064
  2. L-THYROX [Concomitant]
     Route: 064
  3. FOLS?URE [Concomitant]
     Route: 064
  4. FLUOXETINE [Suspect]
     Active Substance: FLUOXETINE\FLUOXETINE HYDROCHLORIDE
     Route: 064

REACTIONS (2)
  - Atrial septal defect [Not Recovered/Not Resolved]
  - Ventricular septal defect [Not Recovered/Not Resolved]

NARRATIVE: CASE EVENT DATE: 20131104
